FAERS Safety Report 14025710 (Version 2)
Quarter: 2017Q4

REPORT INFORMATION
  Report Type: Report from Study
  Country: CA (occurrence: CA)
  Receive Date: 20170929
  Receipt Date: 20171106
  Transmission Date: 20180321
  Serious: Yes (Death, Hospitalization)
  Sender: FDA-Public Use
  Company Number: CA-HLSUS-2017-CA-001005

PATIENT
  Age: 80 Year
  Sex: Female
  Weight: 39.9 kg

DRUGS (8)
  1. VITAMIN D [Concomitant]
     Active Substance: CHOLECALCIFEROL
     Dosage: 1000 IU DAILY
     Route: 048
  2. CLOZARIL [Suspect]
     Active Substance: CLOZAPINE
     Indication: MANIA
     Route: 048
     Dates: start: 20121210
  3. MOTILIUM [Concomitant]
     Active Substance: DOMPERIDONE
     Dosage: 10 MG BEFORE MEAL, THREE TIMES A DAY
     Route: 048
  4. FLORINEF ACETATE [Concomitant]
     Active Substance: FLUDROCORTISONE ACETATE
     Dosage: 0.1 MG DAILY
     Route: 048
  5. LITHIUM. [Concomitant]
     Active Substance: LITHIUM
     Dosage: 450 MG ALTERNATING WITH 300 MG ON ALTERNATE DAYS
     Route: 048
  6. SINEMET [Concomitant]
     Active Substance: CARBIDOPA\LEVODOPA
     Dosage: 2 TABLETS AT 9 AM, 11 AM, 1PM; 11/2 TABLET AT 3PM, 5PM, 7PM
  7. EXELON PATCH [Concomitant]
     Active Substance: RIVASTIGMINE
     Dosage: 9.5 MG/ 24 HRS
     Route: 062
  8. TYLENOL [Concomitant]
     Active Substance: ACETAMINOPHEN
     Dosage: 500 MG DAILY
     Route: 048

REACTIONS (2)
  - Cardiac arrest [Fatal]
  - Fall [Unknown]

NARRATIVE: CASE EVENT DATE: 20170904
